FAERS Safety Report 25434042 (Version 1)
Quarter: 2025Q2

REPORT INFORMATION
  Report Type: Spontaneous
  Country: US (occurrence: US)
  Receive Date: 20250613
  Receipt Date: 20250613
  Transmission Date: 20250716
  Serious: Yes (Death, Hospitalization)
  Sender: MERCK SHARP & DOHME LLC
  Company Number: US-009507513-2294668

PATIENT
  Age: 75 Year
  Sex: Male

DRUGS (1)
  1. VERICIGUAT [Suspect]
     Active Substance: VERICIGUAT

REACTIONS (3)
  - Death [Fatal]
  - Dyspnoea [Unknown]
  - Cardiac failure [Fatal]

NARRATIVE: CASE EVENT DATE: 20250601
